FAERS Safety Report 8459379 (Version 3)
Quarter: 2013Q3

REPORT INFORMATION
  Report Type: Spontaneous
  Country: US (occurrence: US)
  Receive Date: 20120314
  Receipt Date: 20130913
  Transmission Date: 20140515
  Serious: No
  Sender: FDA-Public Use
  Company Number: US-ASTRAZENECA-2011SE71210

PATIENT
  Age: 70 Year
  Sex: Male

DRUGS (3)
  1. TOPROL XL [Suspect]
     Indication: HYPERTENSION
     Route: 048
     Dates: start: 201305
  2. TRICOR [Concomitant]
  3. ZOCOR [Concomitant]

REACTIONS (7)
  - Accident at work [Unknown]
  - Hypopnoea [Unknown]
  - Respiratory rate increased [Unknown]
  - Asthenia [Unknown]
  - Fatigue [Unknown]
  - Drug dose omission [Not Recovered/Not Resolved]
  - Drug dispensed to wrong patient [Unknown]
